FAERS Safety Report 9341822 (Version 1)
Quarter: 2013Q2

REPORT INFORMATION
  Report Type: Spontaneous
  Country: GB (occurrence: None)
  Receive Date: 20130606
  Receipt Date: 20130606
  Transmission Date: 20140414
  Serious: Yes (Death)
  Sender: FDA-Public Use
  Company Number: GER/UKI/13/0029851

PATIENT
  Age: 27 Year
  Sex: Male

DRUGS (2)
  1. SILDENAFIL (SILDENAFIL) [Suspect]
     Indication: PRODUCT USED FOR UNKNOWN INDICATION
  2. AMBRISENTAN (AMBRISENTAN) [Suspect]
     Indication: PRODUCT USED FOR UNKNOWN INDICATION

REACTIONS (1)
  - Death [None]
